FAERS Safety Report 4324137-0 (Version None)
Quarter: 2004Q1

REPORT INFORMATION
  Report Type: 
  Country: None (occurrence: None)
  Receive Date: 20040326
  Receipt Date: 20031229
  Transmission Date: 20041129
  Serious: No
  Sender: FDA-Public Use
  Company Number: US-GLAXOSMITHKLINE-A0490781A

PATIENT
  Age: 68 Year
  Sex: Female

DRUGS (3)
  1. ADVAIR DISKUS 100/50 [Suspect]
     Indication: ASTHMA
     Dosage: 1MCG TWICE PER DAY
     Route: 055
  2. SEREVENT [Suspect]
     Indication: ASTHMA
     Route: 055
  3. ALBUTEROL [Concomitant]

REACTIONS (3)
  - ABDOMINAL PAIN [None]
  - HEADACHE [None]
  - VOMITING [None]
